FAERS Safety Report 12058726 (Version 1)
Quarter: 2016Q1

REPORT INFORMATION
  Report Type: Spontaneous
  Country: US (occurrence: None)
  Receive Date: 20160208
  Receipt Date: 20160208
  Transmission Date: 20160526
  Serious: Yes (Hospitalization)
  Sender: FDA-Public Use
  Company Number: None

PATIENT
  Age: 73 Year
  Sex: Male

DRUGS (14)
  1. PROMETH/COD [Concomitant]
  2. DOXAZOSIN [Concomitant]
     Active Substance: DOXAZOSIN\DOXAZOSIN MESYLATE
  3. KYRPOLIS [Concomitant]
  4. ZOLINZA [Suspect]
     Active Substance: VORINOSTAT
     Indication: PLASMA CELL MYELOMA
     Dosage: 4 CPS, DAYS 1-7 AND 15-21, PO
     Route: 048
     Dates: start: 20160115, end: 20160205
  5. APSI-B1 [Concomitant]
  6. ALPRAZOLAM. [Concomitant]
     Active Substance: ALPRAZOLAM
  7. AZITHROMYCIN ANHYDROUS. [Concomitant]
     Active Substance: AZITHROMYCIN ANHYDROUS
  8. DEXAMETHASON [Concomitant]
     Active Substance: DEXAMETHASONE
  9. FARYDAK [Suspect]
     Active Substance: PANOBINOSTAT
     Indication: PLASMA CELL MYELOMA
     Dosage: 1 CAP, AS DIR., PO
     Route: 048
     Dates: start: 20160114, end: 20160205
  10. BENADRYL [Concomitant]
     Active Substance: DIPHENHYDRAMINE HYDROCHLORIDE
  11. FLUTICASONE [Concomitant]
     Active Substance: FLUTICASONE\FLUTICASONE PROPIONATE
  12. POMALIST [Concomitant]
  13. AMOX/K CLAV [Concomitant]
     Active Substance: AMOXICILLIN\CLAVULANATE POTASSIUM
  14. FARYDAK [Concomitant]
     Active Substance: PANOBINOSTAT

REACTIONS (1)
  - Disease progression [None]

NARRATIVE: CASE EVENT DATE: 20160205
